FAERS Safety Report 9542478 (Version 1)
Quarter: 2013Q2

REPORT INFORMATION
  Report Type: Spontaneous
  Country: US (occurrence: None)
  Receive Date: 20130524
  Receipt Date: 20130524
  Transmission Date: 20140414
  Serious: No
  Sender: FDA-Public Use
  Company Number: PHEH2012US025539

PATIENT
  Age: 44 Year
  Sex: Female

DRUGS (10)
  1. GILENYA (FINGOLIMOD) CAPSULE, 0.5MG [Suspect]
     Indication: MULTIPLE SCLEROSIS
     Dosage: 0.5 MG, QD, ORAL
     Route: 048
     Dates: start: 20110613
  2. DIAZEPAM (DIAZEPAM) [Concomitant]
  3. SIMVASTATIN (SIMVASTATIN) [Concomitant]
  4. METHOCARBAMOL (METHOCARBAMOL) [Concomitant]
  5. TEMAZEPAM (TEMAZEPAM) [Concomitant]
  6. FOLIC ACID (FOLIC ACID) [Concomitant]
  7. ADVIL (CHLORPHENAMINE MALEATE, IBUPROFEN, PHENYLEPHRINE HYDROCHLORIDE) [Concomitant]
  8. OXYBUTYNIN (OXYBUTYNIN) [Concomitant]
  9. TOPAMAX (TOPIRAMATE) [Concomitant]
  10. CALCIUM (CALCUM) [Concomitant]

REACTIONS (3)
  - Oropharyngeal pain [None]
  - Pyrexia [None]
  - Cough [None]
